FAERS Safety Report 7315148-1 (Version None)
Quarter: 2011Q1

REPORT INFORMATION
  Report Type: 
  Country: None (occurrence: None)
  Receive Date: 20110225
  Receipt Date: 20110218
  Transmission Date: 20110831
  Serious: Yes (Life-Threatening, Other)
  Sender: FDA-Public Use
  Company Number: US-B.I. PHARMACEUTICALS,INC./RIDGEFIELD-2011-BP-04743BP

PATIENT
  Age: 88 Year
  Sex: Female
  Weight: 44.45 kg

DRUGS (1)
  1. PRADAXA [Suspect]

REACTIONS (5)
  - MALNUTRITION [None]
  - DYSPEPSIA [None]
  - HYPOPHAGIA [None]
  - CARDIO-RESPIRATORY ARREST [None]
  - WEIGHT DECREASED [None]
